FAERS Safety Report 5098367-7 (Version None)
Quarter: 2006Q3

REPORT INFORMATION
  Report Type: 
  Country: None (occurrence: None)
  Receive Date: 20060906
  Receipt Date: 20060831
  Transmission Date: 20061208
  Serious: Yes (Other)
  Sender: FDA-Public Use
  Company Number: 2006UW17281

PATIENT
  Age: 76 Year
  Sex: Male
  Weight: 77.1 kg

DRUGS (3)
  1. CASODEX [Suspect]
     Indication: PROSTATE CANCER
     Route: 048
     Dates: start: 20020101
  2. VITAMINS [Concomitant]
  3. HIGH CHOLESTEROL MEDICATION [Concomitant]
     Indication: BLOOD CHOLESTEROL INCREASED

REACTIONS (3)
  - BREAST CANCER [None]
  - BREAST CANCER MALE [None]
  - GYNAECOMASTIA [None]
